FAERS Safety Report 8894096 (Version 1)
Quarter: 2012Q4

REPORT INFORMATION
  Report Type: 
  Country: US (occurrence: US)
  Receive Date: 20121108
  Receipt Date: 20121108
  Transmission Date: 20130627
  Serious: No
  Sender: FDA-Public Use
  Company Number: US-009507513-1211USA002651

PATIENT
  Sex: Male

DRUGS (1)
  1. DULERA [Suspect]
     Dosage: Inhaler (EA) 100/5 mcg

REACTIONS (1)
  - Epistaxis [Unknown]
